FAERS Safety Report 18246052 (Version 1)
Quarter: 2020Q3

REPORT INFORMATION
  Report Type: Spontaneous
  Country: US (occurrence: US)
  Receive Date: 20200909
  Receipt Date: 20200909
  Transmission Date: 20201103
  Serious: Yes (Death)
  Sender: FDA-Public Use
  Company Number: None

PATIENT
  Age: 51 Year
  Sex: Male

DRUGS (2)
  1. TACROLIMUS. [Suspect]
     Active Substance: TACROLIMUS
     Indication: RENAL TRANSPLANT
     Route: 048
     Dates: start: 20140524
  2. PREDNISONE. [Concomitant]
     Active Substance: PREDNISONE
     Dates: start: 20181029

REACTIONS (1)
  - Death [None]

NARRATIVE: CASE EVENT DATE: 20200901
